FAERS Safety Report 16902985 (Version 1)
Quarter: 2019Q4

REPORT INFORMATION
  Report Type: Spontaneous
  Country: US (occurrence: US)
  Receive Date: 20191009
  Receipt Date: 20191009
  Transmission Date: 20200122
  Serious: Yes (Other)
  Sender: FDA-Public Use
  Company Number: None

PATIENT
  Age: 42 Year
  Sex: Female

DRUGS (2)
  1. PROGESTERONE. [Suspect]
     Active Substance: PROGESTERONE
     Indication: ENDOMETRIAL HYPERPLASIA
     Route: 048
     Dates: start: 20190522, end: 20191006
  2. NONE [Suspect]
     Active Substance: UNSPECIFIED INGREDIENT

REACTIONS (3)
  - Sleep disorder [None]
  - Somnambulism [None]
  - Sleep talking [None]

NARRATIVE: CASE EVENT DATE: 20191006
